FAERS Safety Report 10172784 (Version 13)
Quarter: 2016Q2

REPORT INFORMATION
  Report Type: Report from Study
  Country: CA (occurrence: CA)
  Receive Date: 20140515
  Receipt Date: 20160620
  Transmission Date: 20160815
  Serious: Yes (Hospitalization, Other)
  Sender: FDA-Public Use
  Company Number: CA-ROCHE-1196762

PATIENT
  Age: 65 Year
  Sex: Female
  Weight: 62.6 kg

DRUGS (15)
  1. FOLIC ACID. [Concomitant]
     Active Substance: FOLIC ACID
  2. DIOVAN [Concomitant]
     Active Substance: VALSARTAN
     Indication: BLOOD PRESSURE INCREASED
  3. VALSARTAN. [Concomitant]
     Active Substance: VALSARTAN
  4. RITUXAN [Suspect]
     Active Substance: RITUXIMAB
     Indication: RHEUMATOID ARTHRITIS
     Dosage: LAST RITUXAN INFUSION: 31/OCT/2012
     Route: 042
     Dates: start: 20090917
  5. PROZAC [Concomitant]
     Active Substance: FLUOXETINE HYDROCHLORIDE
  6. ARAVA [Suspect]
     Active Substance: LEFLUNOMIDE
     Indication: RHEUMATOID ARTHRITIS
     Route: 065
     Dates: start: 201311
  7. METHOTREXATE [Suspect]
     Active Substance: METHOTREXATE
     Indication: PRODUCT USED FOR UNKNOWN INDICATION
     Dosage: DISCONTINUED
     Route: 065
  8. ACTONEL [Concomitant]
     Active Substance: RISEDRONATE SODIUM
  9. DIPHENHYDRAMINE HCL [Concomitant]
     Active Substance: DIPHENHYDRAMINE HYDROCHLORIDE
     Indication: PREMEDICATION
     Route: 048
     Dates: start: 20090917
  10. TRAMADOL. [Concomitant]
     Active Substance: TRAMADOL
  11. SULINDAC. [Concomitant]
     Active Substance: SULINDAC
  12. VITAMIN B12 [Concomitant]
     Active Substance: CYANOCOBALAMIN
  13. ACETAMINOPHEN. [Concomitant]
     Active Substance: ACETAMINOPHEN
     Indication: PREMEDICATION
     Route: 048
     Dates: start: 20090917
  14. AMLODIPINE [Concomitant]
     Active Substance: AMLODIPINE BESYLATE
  15. METHYLPREDNISOLONE. [Concomitant]
     Active Substance: METHYLPREDNISOLONE
     Indication: PREMEDICATION
     Route: 042
     Dates: start: 20090917

REACTIONS (31)
  - Musculoskeletal stiffness [Not Recovered/Not Resolved]
  - Joint swelling [Not Recovered/Not Resolved]
  - Pain [Unknown]
  - Asthenia [Unknown]
  - C-reactive protein increased [Unknown]
  - Constipation [Not Recovered/Not Resolved]
  - Fall [Unknown]
  - Arthralgia [Not Recovered/Not Resolved]
  - Oxygen saturation decreased [Unknown]
  - Back pain [Unknown]
  - Blood pressure increased [Unknown]
  - Kidney infection [Unknown]
  - Drug ineffective [Unknown]
  - Diarrhoea [Not Recovered/Not Resolved]
  - Hepatic enzyme increased [Not Recovered/Not Resolved]
  - Abdominal pain [Not Recovered/Not Resolved]
  - Hepatotoxicity [Unknown]
  - Fatigue [Not Recovered/Not Resolved]
  - Pain [Not Recovered/Not Resolved]
  - Synovitis [Not Recovered/Not Resolved]
  - Ill-defined disorder [Unknown]
  - Migraine [Unknown]
  - Nodal osteoarthritis [Not Recovered/Not Resolved]
  - Blood pressure increased [Unknown]
  - Weight increased [Unknown]
  - Drug effect decreased [Unknown]
  - Upper limb fracture [Not Recovered/Not Resolved]
  - Tenderness [Unknown]
  - Swelling [Not Recovered/Not Resolved]
  - Inflammatory pain [Not Recovered/Not Resolved]
  - Abdominal pain upper [Not Recovered/Not Resolved]

NARRATIVE: CASE EVENT DATE: 20130208
